FAERS Safety Report 14746884 (Version 1)
Quarter: 2018Q2

REPORT INFORMATION
  Report Type: Spontaneous
  Country: US (occurrence: US)
  Receive Date: 20180405
  Receipt Date: 20180405
  Transmission Date: 20180711
  Serious: Yes (Hospitalization)
  Sender: FDA-Public Use
  Company Number: None

PATIENT
  Age: 76 Year
  Sex: Female

DRUGS (1)
  1. ERIBULIN MESYLATE [Suspect]
     Active Substance: ERIBULIN MESYLATE
     Dosage: ?          OTHER FREQUENCY:D1/D8 Q 21 DAY CYC;?
     Route: 042
     Dates: start: 20170315, end: 20180321

REACTIONS (2)
  - Deep vein thrombosis [None]
  - Pulmonary embolism [None]

NARRATIVE: CASE EVENT DATE: 20180401
